FAERS Safety Report 8806667 (Version 1)
Quarter: 2012Q4

REPORT INFORMATION
  Report Type: Spontaneous
  Country: US (occurrence: None)
  Receive Date: 20120920
  Receipt Date: 20120920
  Transmission Date: 20130627
  Serious: Yes (Death)
  Sender: FDA-Public Use
  Company Number: None

PATIENT
  Age: 79 Year
  Sex: Male

DRUGS (1)
  1. CABAZITAXEL [Suspect]
     Indication: UROTHELIAL CARCINOMA
     Dosage: 20mg/m2 08/20/2012 Cycle 1 only
     Dates: start: 20120820

REACTIONS (3)
  - Oxygen saturation decreased [None]
  - Hypoxia [None]
  - No therapeutic response [None]
